FAERS Safety Report 7256709-8 (Version None)
Quarter: 2011Q1

REPORT INFORMATION
  Report Type: 
  Country: None (occurrence: None)
  Receive Date: 20110129
  Receipt Date: 20100809
  Transmission Date: 20110831
  Serious: No
  Sender: FDA-Public Use
  Company Number: US-ABBOTT-10P-163-0663242-00

PATIENT
  Sex: Female
  Weight: 78.996 kg

DRUGS (3)
  1. HUMIRA [Suspect]
     Indication: RHEUMATOID ARTHRITIS
     Dates: start: 20060101, end: 20100601
  2. HUMIRA [Suspect]
     Dates: start: 20100601
  3. SIMVASTATIN [Concomitant]
     Indication: PRODUCT USED FOR UNKNOWN INDICATION

REACTIONS (4)
  - LACERATION [None]
  - ARTHRALGIA [None]
  - ONYCHOCLASIS [None]
  - ALOPECIA [None]
